FAERS Safety Report 11309068 (Version 2)
Quarter: 2015Q4

REPORT INFORMATION
  Report Type: Spontaneous
  Country: US (occurrence: US)
  Receive Date: 20150724
  Receipt Date: 20151204
  Transmission Date: 20160304
  Serious: Yes (Hospitalization, Other)
  Sender: FDA-Public Use
  Company Number: US-PFIZER INC-2015242621

PATIENT
  Age: 82 Year
  Sex: Male
  Weight: 66 kg

DRUGS (2)
  1. SUTENT [Suspect]
     Active Substance: SUNITINIB MALATE
     Indication: RENAL CANCER METASTATIC
     Dosage: 50 MG, CYCLIC (EVERY OTHER DAY IN THE EVENING BEFORE BEDTIME)
     Route: 048
  2. SUTENT [Suspect]
     Active Substance: SUNITINIB MALATE
     Dosage: UNK UNK, CYCLIC EVERY OTHER DAY FOR TWO WEEKS
     Dates: start: 20150622

REACTIONS (8)
  - Oedema peripheral [Unknown]
  - Platelet count decreased [Unknown]
  - Disease progression [Unknown]
  - Pulmonary oedema [Unknown]
  - Dyspnoea [Unknown]
  - Fall [Unknown]
  - Upper limb fracture [Unknown]
  - Renal cancer metastatic [Unknown]

NARRATIVE: CASE EVENT DATE: 20150704
